FAERS Safety Report 7439808-7 (Version None)
Quarter: 2011Q2

REPORT INFORMATION
  Report Type: 
  Country: None (occurrence: None)
  Receive Date: 20110427
  Receipt Date: 20110325
  Transmission Date: 20111010
  Serious: Yes (Hospitalization)
  Sender: FDA-Public Use
  Company Number: JP-SANOFI-AVENTIS-2011SA018250

PATIENT
  Age: 77 Year
  Sex: Female
  Weight: 45 kg

DRUGS (7)
  1. ALLOPURINOL [Suspect]
  2. ALL OTHER THERAPEUTIC PRODUCTS [Concomitant]
  3. LANSOPRAZOLE [Suspect]
  4. PLETAL [Suspect]
  5. LASIX [Concomitant]
     Indication: HYPERTENSION
     Route: 065
  6. PLAVIX [Suspect]
     Indication: ANGINA PECTORIS
     Route: 048
     Dates: end: 20100901
  7. ASPIRIN [Suspect]

REACTIONS (5)
  - SENSATION OF HEAVINESS [None]
  - FEELING ABNORMAL [None]
  - ANAEMIA MACROCYTIC [None]
  - COLD SWEAT [None]
  - DYSPNOEA [None]
